FAERS Safety Report 10198629 (Version 1)
Quarter: 2014Q2

REPORT INFORMATION
  Report Type: Spontaneous
  Country: US (occurrence: US)
  Receive Date: 20140527
  Receipt Date: 20140527
  Transmission Date: 20141212
  Serious: No
  Sender: FDA-Public Use
  Company Number: US-NOVEN-13US007374

PATIENT
  Age: 19 Year
  Sex: Female

DRUGS (2)
  1. DAYTRANA [Suspect]
     Indication: ATTENTION DEFICIT/HYPERACTIVITY DISORDER
     Dosage: 10 MG, UNK
     Route: 062
     Dates: start: 201306, end: 20130622
  2. DAYTRANA [Suspect]
     Dosage: 20 MG, UNK
     Route: 062
     Dates: start: 20130722

REACTIONS (8)
  - Asthenia [Recovered/Resolved]
  - Nausea [Recovered/Resolved]
  - Drug ineffective [Recovered/Resolved]
  - Abdominal pain upper [Recovered/Resolved]
  - Application site erythema [Not Recovered/Not Resolved]
  - Off label use [Not Recovered/Not Resolved]
  - Drug prescribing error [Not Recovered/Not Resolved]
  - Drug dose omission [Recovered/Resolved]
